FAERS Safety Report 6241530-X (Version None)
Quarter: 2009Q2

REPORT INFORMATION
  Report Type: 
  Country: None (occurrence: None)
  Receive Date: 20090623
  Receipt Date: 20031031
  Transmission Date: 20091009
  Serious: Yes (Hospitalization)
  Sender: FDA-Public Use
  Company Number: BR-ROCHE-354526

PATIENT
  Sex: Male
  Weight: 48.5 kg

DRUGS (52)
  1. DACLIZUMAB [Suspect]
     Route: 042
     Dates: start: 20030827, end: 20030827
  2. DACLIZUMAB [Suspect]
     Route: 042
     Dates: start: 20030911, end: 20031024
  3. MYCOPHENOLATE MOFETIL [Suspect]
     Dosage: FORM REPORTED: DRAG
     Route: 048
     Dates: start: 20030827, end: 20030827
  4. MYCOPHENOLATE MOFETIL [Suspect]
     Route: 048
     Dates: start: 20031028, end: 20031119
  5. MYCOPHENOLATE MOFETIL [Suspect]
     Route: 048
     Dates: start: 20031120
  6. TACROLIMUS [Suspect]
     Route: 048
     Dates: start: 20030827, end: 20030904
  7. TACROLIMUS [Suspect]
     Route: 048
     Dates: start: 20030905, end: 20030915
  8. TACROLIMUS [Suspect]
     Route: 048
     Dates: start: 20030916, end: 20031027
  9. TACROLIMUS [Suspect]
     Route: 048
     Dates: start: 20031028, end: 20031105
  10. TACROLIMUS [Suspect]
     Route: 048
     Dates: start: 20031106, end: 20031201
  11. TACROLIMUS [Suspect]
     Route: 048
     Dates: start: 20031202, end: 20031211
  12. TACROLIMUS [Suspect]
     Route: 048
     Dates: start: 20031212, end: 20040512
  13. TACROLIMUS [Suspect]
     Route: 048
     Dates: start: 20040513
  14. TACROLIMUS [Suspect]
     Route: 048
     Dates: start: 20040707
  15. TACROLIMUS [Suspect]
     Route: 048
     Dates: start: 20040906
  16. TACROLIMUS [Suspect]
     Route: 048
     Dates: start: 20041113
  17. METHYLPREDNISOLONE [Suspect]
     Route: 042
     Dates: start: 20030827, end: 20030827
  18. METHYLPREDNISOLONE [Suspect]
     Route: 042
     Dates: start: 20030828, end: 20030828
  19. METHYLPREDNISOLONE [Suspect]
     Route: 042
     Dates: start: 20030829, end: 20030830
  20. METHYLPREDNISOLONE [Suspect]
     Route: 042
     Dates: start: 20030915, end: 20030920
  21. PREDNISONE [Suspect]
     Dosage: FORM REPORTED: DRAG
     Route: 048
     Dates: start: 20030830
  22. PREDNISONE [Suspect]
     Route: 048
     Dates: start: 20030909, end: 20030911
  23. PREDNISONE [Suspect]
     Route: 048
     Dates: start: 20030912, end: 20031012
  24. PREDNISONE [Suspect]
     Route: 048
     Dates: start: 20031013
  25. PREDNISONE [Suspect]
     Route: 048
     Dates: start: 20031202
  26. RANITIDINE [Concomitant]
     Indication: DRUG USE FOR UNKNOWN INDICATION
     Route: 048
     Dates: start: 20030827
  27. OMEPRAZOL [Concomitant]
     Dosage: FREQUENCY ^MID^.
     Route: 048
     Dates: start: 20030829
  28. NIFEDIPINE [Concomitant]
     Dosage: FORM REPORTED: DRAG
     Route: 048
     Dates: start: 20030828
  29. NIFEDIPINE [Concomitant]
     Route: 048
     Dates: start: 20030907, end: 20030914
  30. PROPRANOLOL HYDROCHLORIDE [Concomitant]
     Dosage: FORM: DRAG
     Route: 048
     Dates: start: 20030829
  31. PROPRANOLOL HYDROCHLORIDE [Concomitant]
     Route: 048
     Dates: start: 20030905, end: 20031101
  32. PROPRANOLOL HYDROCHLORIDE [Concomitant]
     Route: 048
     Dates: start: 20031212
  33. PROPRANOLOL HYDROCHLORIDE [Concomitant]
     Route: 048
     Dates: start: 20040402, end: 20050104
  34. PROPRANOLOL HYDROCHLORIDE [Concomitant]
     Route: 048
     Dates: start: 20050429
  35. CIPROFLOXACIN [Concomitant]
     Dosage: FORM REPORTED: DRAG
     Route: 048
     Dates: end: 20030915
  36. CIPROFLOXACIN [Concomitant]
     Route: 048
     Dates: start: 20031007
  37. HYDRALAZINE HCL [Concomitant]
     Route: 048
     Dates: start: 20030912
  38. MINOXIDIL [Concomitant]
     Dosage: FORM REPORTED: DRAG
     Route: 048
     Dates: start: 20030829, end: 20030830
  39. MINOXIDIL [Concomitant]
     Route: 048
     Dates: start: 20030914, end: 20031008
  40. NYSTATINE [Concomitant]
     Route: 048
     Dates: start: 20030828
  41. DIAZEPAM [Concomitant]
     Indication: DRUG USE FOR UNKNOWN INDICATION
     Dosage: FREQUENCY ^MID^.
     Route: 048
     Dates: start: 20030830
  42. AMOXICILINA [Concomitant]
     Dosage: DRUG REPORTED: DRAG
     Route: 048
     Dates: start: 20040402, end: 20040414
  43. ATENSINA [Concomitant]
     Dosage: FORM REPORTED: DRAG
     Route: 048
     Dates: start: 20030827
  44. ATENSINA [Concomitant]
     Route: 048
     Dates: start: 20030829, end: 20031011
  45. AZTREONAM [Concomitant]
     Dosage: DRUG REPORTED: AZTREONAN
     Route: 042
     Dates: start: 20030916, end: 20030926
  46. BACTRIM [Concomitant]
     Dosage: FORM REPORTED: DRAG
     Route: 048
     Dates: start: 20040128
  47. CAPTOPRIL [Concomitant]
     Dosage: FORM REPORTED: DRAG
     Route: 048
     Dates: start: 20030830, end: 20031008
  48. CAPTOPRIL [Concomitant]
     Dosage: FREQUENCY REPORTED: 2
     Route: 048
     Dates: start: 20050104, end: 20050415
  49. CEFOTAXIME [Concomitant]
     Route: 042
     Dates: start: 20030827, end: 20030904
  50. CIPROFLOXACIN [Concomitant]
     Route: 042
     Dates: start: 20030905
  51. FUROSEMIDE [Concomitant]
     Dosage: FORM REPORTED: DRAG
     Route: 048
     Dates: start: 20030907, end: 20030910
  52. METHYLDOPA [Concomitant]
     Dosage: FORM REPORTED: DRAG
     Route: 048
     Dates: start: 20030828, end: 20030905

REACTIONS (5)
  - RENAL TUBULAR NECROSIS [None]
  - SINUSITIS [None]
  - URINARY FISTULA [None]
  - URINARY TRACT INFECTION [None]
  - UROSEPSIS [None]
